FAERS Safety Report 24580748 (Version 1)
Quarter: 2024Q4

REPORT INFORMATION
  Report Type: Report from Study
  Country: US (occurrence: US)
  Receive Date: 20241105
  Receipt Date: 20241105
  Transmission Date: 20250114
  Serious: Yes (Other)
  Sender: ABBVIE
  Company Number: US-ABBVIE-5984891

PATIENT
  Sex: Male

DRUGS (2)
  1. VENCLEXTA [Suspect]
     Active Substance: VENETOCLAX
     Indication: Acute monocytic leukaemia
     Dosage: ONCE DAILY FOR 7 DAYS ON THEN 21 DAYS OFF
     Route: 048
     Dates: start: 20220727
  2. Posaconazole Delayed release [Concomitant]
     Indication: Product used for unknown indication
     Dosage: 100 MG

REACTIONS (2)
  - Biopsy bone marrow [Recovering/Resolving]
  - Neutrophil count decreased [Recovering/Resolving]
